FAERS Safety Report 17099443 (Version 3)
Quarter: 2022Q2

REPORT INFORMATION
  Report Type: Spontaneous
  Country: US (occurrence: US)
  Receive Date: 20191202
  Receipt Date: 20220518
  Transmission Date: 20220721
  Serious: No
  Sender: FDA-Public Use
  Company Number: US-PFIZER INC-2019516470

PATIENT
  Age: 79 Year
  Sex: Female

DRUGS (7)
  1. DIFLUCAN [Suspect]
     Active Substance: FLUCONAZOLE
     Dosage: UNK
  2. ZOLEDRONIC ACID [Suspect]
     Active Substance: ZOLEDRONIC ACID
     Dosage: UNK
  3. MANNITOL [Suspect]
     Active Substance: MANNITOL
     Dosage: UNK
  4. WATER [Suspect]
     Active Substance: WATER
     Dosage: UNK
  5. FOSAMAX [Suspect]
     Active Substance: ALENDRONATE SODIUM
     Dosage: UNK
  6. ROPINIROLE [Suspect]
     Active Substance: ROPINIROLE
     Dosage: UNK
  7. SUDAFED [Suspect]
     Active Substance: PSEUDOEPHEDRINE HYDROCHLORIDE
     Dosage: UNK

REACTIONS (1)
  - Drug hypersensitivity [Unknown]
